FAERS Safety Report 13286142 (Version 16)
Quarter: 2019Q2

REPORT INFORMATION
  Report Type: Report from Study
  Country: US (occurrence: US)
  Receive Date: 20170301
  Receipt Date: 20190524
  Transmission Date: 20190711
  Serious: Yes (Hospitalization)
  Sender: FDA-Public Use
  Company Number: US-ACTELION-A-NJ2015-121769

PATIENT
  Age: 66 Year
  Sex: Female
  Weight: 105.21 kg

DRUGS (4)
  1. OPSUMIT [Suspect]
     Active Substance: MACITENTAN
     Dosage: UNK
     Route: 048
  2. OPSUMIT [Suspect]
     Active Substance: MACITENTAN
     Dosage: 10 MG, QD
     Route: 048
  3. OPSUMIT [Suspect]
     Active Substance: MACITENTAN
     Indication: PULMONARY ARTERIAL HYPERTENSION
     Dosage: 10 MG, QD
     Route: 048
     Dates: start: 20150402
  4. OXYGEN. [Concomitant]
     Active Substance: OXYGEN

REACTIONS (30)
  - Blood creatinine increased [Unknown]
  - Hospitalisation [Unknown]
  - Insomnia [Unknown]
  - Respiratory syncytial virus infection [Unknown]
  - Anaemia [Recovered/Resolved]
  - Pulmonary hypertension [Unknown]
  - Catheterisation cardiac [Unknown]
  - Pneumonia [Not Recovered/Not Resolved]
  - Rales [Not Recovered/Not Resolved]
  - Oxygen saturation decreased [Unknown]
  - Chronic obstructive pulmonary disease [Recovered/Resolved]
  - Dehydration [Recovered/Resolved]
  - Increased tendency to bruise [Unknown]
  - Headache [Unknown]
  - Peripheral swelling [Recovered/Resolved]
  - Cough [Recovering/Resolving]
  - Varicose vein [Unknown]
  - Contusion [Unknown]
  - Oedema peripheral [Unknown]
  - Gastrointestinal haemorrhage [Recovered/Resolved]
  - Transfusion [Recovered/Resolved]
  - Nasopharyngitis [Unknown]
  - Haemoglobin decreased [Recovered/Resolved]
  - Epistaxis [Recovered/Resolved]
  - Sputum discoloured [Not Recovered/Not Resolved]
  - Dyspnoea [Unknown]
  - Respiratory failure [Recovered/Resolved]
  - Dizziness exertional [Recovered/Resolved]
  - Therapy non-responder [Unknown]
  - Malaise [Unknown]

NARRATIVE: CASE EVENT DATE: 20150430
